FAERS Safety Report 13744889 (Version 16)
Quarter: 2021Q1

REPORT INFORMATION
  Report Type: Spontaneous
  Country: US (occurrence: US)
  Receive Date: 20170712
  Receipt Date: 20210315
  Transmission Date: 20210419
  Serious: Yes (Hospitalization, Other)
  Sender: FDA-Public Use
  Company Number: US-PFIZER INC-2017301154

PATIENT
  Age: 93 Year
  Sex: Female
  Weight: 64 kg

DRUGS (7)
  1. LYRICA [Suspect]
     Active Substance: PREGABALIN
     Indication: ARTHRALGIA
     Dosage: 300 MG, 2X/DAY
     Route: 048
  2. LYRICA [Suspect]
     Active Substance: PREGABALIN
     Indication: SLEEP DISORDER
     Dosage: 300 MG, 2X/DAY
     Dates: start: 2017, end: 2017
  3. LYRICA [Suspect]
     Active Substance: PREGABALIN
     Indication: MUSCULOSKELETAL STIFFNESS
     Dosage: 150 MG, 2X/DAY
     Dates: start: 2017
  4. LYRICA [Suspect]
     Active Substance: PREGABALIN
     Indication: PAIN
     Dosage: 600 MG, 1X/DAY [300MG, TWO CAPSULES AT NIGHT]
     Route: 048
  5. BABY ASPIRIN [Concomitant]
     Active Substance: ASPIRIN
     Dosage: UNK
  6. LYRICA [Suspect]
     Active Substance: PREGABALIN
     Indication: NEUROPATHY PERIPHERAL
     Dosage: 300 MG, 1X/DAY (1 AT NIGHT)
     Dates: start: 20170629, end: 2017
  7. LYRICA [Suspect]
     Active Substance: PREGABALIN
     Dosage: 300 MG, 1X/DAY (1 CAPSULE EVERY NIGHT AT BEDTIME)
     Route: 048

REACTIONS (21)
  - Pneumonia [Recovered/Resolved]
  - Arthralgia [Not Recovered/Not Resolved]
  - Varicose vein [Unknown]
  - Chest injury [Recovering/Resolving]
  - Rib fracture [Recovering/Resolving]
  - Skin burning sensation [Not Recovered/Not Resolved]
  - Fall [Recovering/Resolving]
  - Seizure [Unknown]
  - Limb discomfort [Not Recovered/Not Resolved]
  - Hypokinesia [Not Recovered/Not Resolved]
  - Cough [Not Recovered/Not Resolved]
  - Expired product administered [Unknown]
  - Eye injury [Unknown]
  - Bronchitis [Unknown]
  - Musculoskeletal stiffness [Unknown]
  - Somnolence [Not Recovered/Not Resolved]
  - Confusional state [Unknown]
  - Pain in extremity [Not Recovered/Not Resolved]
  - Anxiety [Unknown]
  - Splenic injury [Recovering/Resolving]
  - Asthenia [Unknown]

NARRATIVE: CASE EVENT DATE: 20170629
